FAERS Safety Report 9450627 (Version 1)
Quarter: 2013Q3

REPORT INFORMATION
  Report Type: Spontaneous
  Country: US (occurrence: US)
  Receive Date: 20130809
  Receipt Date: 20130809
  Transmission Date: 20140515
  Serious: No
  Sender: FDA-Public Use
  Company Number: US-BAYER-2013-093007

PATIENT
  Age: 58 Year
  Sex: Female
  Weight: 72.56 kg

DRUGS (3)
  1. ALKA-SELTZER FRUIT CHEWS [Suspect]
     Dosage: 2-3 DF, PRN
     Route: 048
     Dates: start: 201307
  2. ALKA MINTS [Suspect]
     Dosage: 2 DF, PRN
     Route: 048
     Dates: start: 2005, end: 2007
  3. ALEVE CAPLET [Suspect]

REACTIONS (2)
  - Drug ineffective [None]
  - Abdominal discomfort [None]
